FAERS Safety Report 22030296 (Version 1)
Quarter: 2023Q1

REPORT INFORMATION
  Report Type: Spontaneous
  Country: US (occurrence: US)
  Receive Date: 20230223
  Receipt Date: 20230223
  Transmission Date: 20230418
  Serious: No
  Sender: FDA-Public Use
  Company Number: US-LANTHEUS-LMI-2022-00272

PATIENT
  Age: 56 Year
  Sex: Female
  Weight: 126 kg

DRUGS (2)
  1. DEFINITY [Suspect]
     Active Substance: PERFLUTREN
     Indication: Echocardiogram
     Dosage: 2 ML (1.3 ML DEFINITY PREPARED IN 8.7 ML NORMAL SALINE)
     Route: 042
     Dates: start: 20220311, end: 20220311
  2. BIDIL [Concomitant]
     Active Substance: HYDRALAZINE HYDROCHLORIDE\ISOSORBIDE DINITRATE
     Indication: Product used for unknown indication
     Route: 048

REACTIONS (1)
  - Pain in extremity [Recovered/Resolved]

NARRATIVE: CASE EVENT DATE: 20220311
